FAERS Safety Report 4380740-3 (Version None)
Quarter: 2004Q2

REPORT INFORMATION
  Report Type: 
  Country: None (occurrence: None)
  Receive Date: 20040616
  Receipt Date: 20040603
  Transmission Date: 20050107
  Serious: Yes (Hospitalization)
  Sender: FDA-Public Use
  Company Number: S04-FRA-01312-01

PATIENT
  Age: 35 Year
  Sex: Female
  Weight: 68 kg

DRUGS (7)
  1. CITALOPRAM HYDROBROMIDE [Suspect]
     Indication: PANIC ATTACK
     Dosage: 20 MG QD IV
     Route: 042
     Dates: start: 20040218, end: 20040218
  2. CITALOPRAM HYDROBROMIDE [Suspect]
     Indication: PANIC ATTACK
     Dosage: 40 MG QD IV
     Route: 042
     Dates: start: 20040219, end: 20040226
  3. LYSANXIA (PRAZEPAM) [Concomitant]
  4. IMOVANE (ZOPICLONE) [Concomitant]
  5. LEVOTHYROXINE SODIUM [Concomitant]
  6. HEPTAMYL (HEPTAMINOL) [Concomitant]
  7. VISCERALGINE (TIEMONIUM MESILATE) [Concomitant]

REACTIONS (13)
  - CONVERSION DISORDER [None]
  - DERMATOSIS [None]
  - DRY SKIN [None]
  - DYSPHAGIA [None]
  - ERYTHEMA [None]
  - EXCORIATION [None]
  - GENITAL LESION [None]
  - IMPETIGO [None]
  - ORAL SOFT TISSUE DISORDER [None]
  - SKIN BURNING SENSATION [None]
  - SKIN INFECTION [None]
  - SKIN LESION [None]
  - SKIN ULCER [None]
